FAERS Safety Report 4748853-1 (Version None)
Quarter: 2005Q3

REPORT INFORMATION
  Report Type: 
  Country: None (occurrence: None)
  Receive Date: 20050819
  Receipt Date: 20050817
  Transmission Date: 20060218
  Serious: Yes (Hospitalization)
  Sender: FDA-Public Use
  Company Number: US-GLAXOSMITHKLINE-A0570631A

PATIENT
  Age: 6 Year
  Sex: Female

DRUGS (5)
  1. LAMICTAL [Suspect]
     Indication: DRUG USE FOR UNKNOWN INDICATION
     Dosage: 125MG TWICE PER DAY
     Route: 048
  2. ABILIFY [Concomitant]
  3. MOBAN [Concomitant]
  4. LITHIUM [Concomitant]
  5. VISTARIL [Concomitant]

REACTIONS (5)
  - BLOOD CREATINE PHOSPHOKINASE ABNORMAL [None]
  - MYOSITIS [None]
  - NEUROLEPTIC MALIGNANT SYNDROME [None]
  - PYREXIA [None]
  - VIRAL MYOSITIS [None]
